FAERS Safety Report 16694254 (Version 1)
Quarter: 2019Q3

REPORT INFORMATION
  Report Type: Spontaneous
  Country: SE (occurrence: SE)
  Receive Date: 20190812
  Receipt Date: 20190812
  Transmission Date: 20191004
  Serious: Yes (Death, Other)
  Sender: FDA-Public Use
  Company Number: SE-HQ SPECIALTY-SE-2019INT000198

PATIENT

DRUGS (3)
  1. CISPLATIN. [Suspect]
     Active Substance: CISPLATIN
     Indication: NON-SMALL CELL LUNG CANCER
     Dosage: 75 MG/M2 ON DAY 1, THREE CYCLES
     Route: 065
  2. VINORELBINE [Suspect]
     Active Substance: VINORELBINE TARTRATE
     Indication: NON-SMALL CELL LUNG CANCER
     Dosage: 25 MG/M2, ON DAY 1 AND 8, EVERY THIRD WEEK, 3 CYCLES
     Route: 042
  3. RADIOTHERAPY [Suspect]
     Active Substance: RADIATION THERAPY
     Indication: NON-SMALL CELL LUNG CANCER
     Dosage: 68 GY, BEGINNING AT THE SECOND CYCLE, WITH EITHER 2 GY DAILY, 5 DAYS A WEEK
     Route: 065

REACTIONS (2)
  - Oesophageal perforation [Fatal]
  - Toxicity to various agents [Fatal]
